FAERS Safety Report 5227307-2 (Version None)
Quarter: 2007Q1

REPORT INFORMATION
  Report Type: 
  Country: None (occurrence: None)
  Receive Date: 20070202
  Receipt Date: 20070129
  Transmission Date: 20070707
  Serious: Yes (Hospitalization, Other)
  Sender: FDA-Public Use
  Company Number: AU-AVENTIS-200710580GDDC

PATIENT
  Age: 58 Year
  Sex: Female

DRUGS (1)
  1. LANTUS [Suspect]
     Route: 058

REACTIONS (4)
  - HEAT STROKE [None]
  - HYPOGLYCAEMIC UNCONSCIOUSNESS [None]
  - KIDNEY INFECTION [None]
  - OEDEMA PERIPHERAL [None]
